FAERS Safety Report 8463812-3 (Version None)
Quarter: 2012Q2

REPORT INFORMATION
  Report Type: 
  Country: None (occurrence: None)
  Receive Date: 20120625
  Receipt Date: 20120621
  Transmission Date: 20120825
  Serious: No
  Sender: FDA-Public Use
  Company Number: US-BAYER-2012-062279

PATIENT
  Age: 28 Year
  Sex: Female

DRUGS (1)
  1. NAPROXEN (ALEVE) [Suspect]
     Indication: TOOTHACHE
     Dosage: 4 DF, ONCE
     Dates: start: 20120621, end: 20120621

REACTIONS (1)
  - NO ADVERSE EVENT [None]
